FAERS Safety Report 8711495 (Version 4)
Quarter: 2014Q3

REPORT INFORMATION
  Report Type: Spontaneous
  Country: CA (occurrence: CA)
  Receive Date: 20120807
  Receipt Date: 20140915
  Transmission Date: 20150326
  Serious: Yes (Life-Threatening, Hospitalization, Other)
  Sender: FDA-Public Use
  Company Number: CA-JNJFOC-20120801229

PATIENT
  Age: 8 Day
  Sex: Female
  Weight: 2.9 kg

DRUGS (5)
  1. CODEINE [Suspect]
     Active Substance: CODEINE
     Indication: EXPOSURE DURING BREAST FEEDING
     Dosage: 2.1MG/KG
     Route: 063
  2. EXTRA STRENGTH ACETAMINOPHEN [Suspect]
     Active Substance: ACETAMINOPHEN
     Indication: EXPOSURE DURING BREAST FEEDING
     Route: 063
  3. OXYCODONE [Suspect]
     Active Substance: OXYCODONE
     Indication: EXPOSURE DURING BREAST FEEDING
     Dosage: EVERY 4 HOURSFOR 2 DAYS, AND EVERY 6 HOURS FOR A SUBSEQUENT 2 DAYS
     Route: 063
  4. TYLENOL WITH CODEINE [Suspect]
     Active Substance: ACETAMINOPHEN\CODEINE PHOSPHATE
     Indication: EXPOSURE DURING BREAST FEEDING
     Route: 063
  5. IBUPROFEN. [Suspect]
     Active Substance: IBUPROFEN
     Indication: EXPOSURE DURING BREAST FEEDING
     Route: 063

REACTIONS (3)
  - Respiratory arrest [Recovering/Resolving]
  - Breast feeding [Unknown]
  - Lethargy [Unknown]
